FAERS Safety Report 6765620-8 (Version None)
Quarter: 2010Q2

REPORT INFORMATION
  Report Type: 
  Country: None (occurrence: None)
  Receive Date: 20100611
  Receipt Date: 20100607
  Transmission Date: 20101027
  Serious: Yes (Hospitalization)
  Sender: FDA-Public Use
  Company Number: US-RB-011057-10

PATIENT

DRUGS (1)
  1. SUBOXONE [Suspect]
     Dosage: DOSNG DETAILS UNKNOWN.
     Route: 064
     Dates: end: 20100522

REACTIONS (2)
  - ADVERSE EVENT [None]
  - DRUG EXPOSURE DURING PREGNANCY [None]
